FAERS Safety Report 4674989-X (Version None)
Quarter: 2005Q2

REPORT INFORMATION
  Report Type: 
  Country: None (occurrence: None)
  Receive Date: 20050525
  Receipt Date: 20050517
  Transmission Date: 20051028
  Serious: Yes (Hospitalization)
  Sender: FDA-Public Use
  Company Number: TPA2005A00568

PATIENT
  Age: 67 Year
  Sex: Female
  Weight: 89.8122 kg

DRUGS (8)
  1. ACTOS [Suspect]
     Indication: DIABETES MELLITUS NON-INSULIN-DEPENDENT
     Dosage: 45 MG, 1 IN 1 D, PER ORAL
     Route: 048
     Dates: end: 20050401
  2. LEXAPRO (ESCITALOPRAM OXALATE) (20 MILLIGRAM) [Concomitant]
  3. CLIDINIUM (CLIDINIUM) [Concomitant]
  4. KLOR-CON (POTASSIUM CHLORIDE) (10 MILLIEQUIVALENTS) [Concomitant]
  5. LASIX (FUROSEMIDE) (20 MILLIGRAM) [Concomitant]
  6. PREVACID [Concomitant]
  7. TYLENOL [Concomitant]
  8. CENTRUM SILVER (CENTRUM SILVER) [Concomitant]

REACTIONS (4)
  - ANGINA PECTORIS [None]
  - BACK DISORDER [None]
  - CONDITION AGGRAVATED [None]
  - ROAD TRAFFIC ACCIDENT [None]
